FAERS Safety Report 25578396 (Version 1)
Quarter: 2025Q3

REPORT INFORMATION
  Report Type: Spontaneous
  Country: US (occurrence: US)
  Receive Date: 20250718
  Receipt Date: 20250718
  Transmission Date: 20251021
  Serious: No
  Sender: Haleon PLC
  Company Number: US-HALEON-2252736

PATIENT
  Age: 70 Year
  Sex: Male
  Weight: 93.8 kg

DRUGS (12)
  1. ADVIL PM (DIPHENHYDRAMINE CITRATE\IBUPROFEN) [Suspect]
     Active Substance: DIPHENHYDRAMINE CITRATE\IBUPROFEN
     Indication: Cough
     Dosage: THREE TABLETS AT NIGHT
  2. METFORMIN [Concomitant]
     Active Substance: METFORMIN HYDROCHLORIDE
     Indication: Type 2 diabetes mellitus
     Dates: start: 20140101
  3. LISINOPRIL [Concomitant]
     Active Substance: LISINOPRIL
     Indication: Hypertension
     Dates: start: 20140101
  4. ATORVASTATIN [Concomitant]
     Active Substance: ATORVASTATIN
     Indication: Hypercholesterolaemia
     Dates: start: 20140101
  5. FAMOTIDINE [Concomitant]
     Active Substance: FAMOTIDINE
     Indication: Gastrooesophageal reflux disease
     Dates: start: 20200101
  6. GABAPENTIN [Concomitant]
     Active Substance: GABAPENTIN
     Indication: Diabetic neuropathy
     Dates: start: 20160101
  7. FOLIC ACID [Concomitant]
     Active Substance: FOLIC ACID
     Indication: Thrombocytopenic purpura
     Dates: start: 20231001
  8. LANIFIBRANOR [Suspect]
     Active Substance: LANIFIBRANOR
     Indication: Metabolic dysfunction-associated steatohepatitis
     Dates: start: 20250620, end: 20250703
  9. MONTELUKAST [Concomitant]
     Active Substance: MONTELUKAST
     Indication: Rhinitis
     Dates: start: 20200101
  10. ALBUTEROL [Concomitant]
     Active Substance: ALBUTEROL
     Indication: Interstitial lung disease
     Dates: start: 20231001
  11. FERROUS SULFATE [Concomitant]
     Active Substance: FERROUS SULFATE
     Indication: Anaemia
     Dates: start: 20240808
  12. VITAMIN C [Concomitant]
     Active Substance: ASCORBIC ACID
     Indication: Anaemia
     Dates: start: 20240808

REACTIONS (1)
  - Transaminases increased [Recovered/Resolved]

NARRATIVE: CASE EVENT DATE: 20250528
